FAERS Safety Report 9027282 (Version 2)
Quarter: 2013Q1

REPORT INFORMATION
  Report Type: Spontaneous
  Country: US (occurrence: US)
  Receive Date: 20130123
  Receipt Date: 20130329
  Transmission Date: 20140127
  Serious: Yes (Other)
  Sender: FDA-Public Use
  Company Number: US-PFIZER INC-2013027148

PATIENT
  Age: 57 Year
  Sex: Female
  Weight: 73.47 kg

DRUGS (1)
  1. PREMARIN [Suspect]
     Dosage: UNK
     Route: 067
     Dates: start: 201212, end: 20130120

REACTIONS (1)
  - Urogenital prolapse [Unknown]
